FAERS Safety Report 6371298-8 (Version None)
Quarter: 2009Q3

REPORT INFORMATION
  Report Type: 
  Country: None (occurrence: None)
  Receive Date: 20090923
  Receipt Date: 20090909
  Transmission Date: 20100115
  Serious: Yes (Hospitalization)
  Sender: FDA-Public Use
  Company Number: GB-MYLANLABS-2009S1015995

PATIENT
  Age: 55 Year
  Sex: Female
  Weight: 85 kg

DRUGS (12)
  1. ALENDRONATE SODIUM [Suspect]
     Indication: PROPHYLAXIS
  2. REVLIMID [Suspect]
     Indication: MULTIPLE MYELOMA
     Route: 048
     Dates: start: 20090720, end: 20090803
  3. REVLIMID [Suspect]
  4. REVLIMID [Suspect]
  5. AMITRIPTYLINE [Concomitant]
     Indication: PAIN
  6. ASPIRIN [Concomitant]
     Indication: THROMBOSIS PROPHYLAXIS
     Route: 048
     Dates: start: 20090720
  7. DEXAMETHASONE [Concomitant]
     Indication: MULTIPLE MYELOMA
     Route: 048
  8. METOCLOPRAMIDE [Concomitant]
     Indication: PROPHYLAXIS
  9. OMEPRAZOLE [Concomitant]
     Indication: PROPHYLAXIS
  10. SYMBICORT [Concomitant]
     Indication: ASTHMA
  11. TRAMADOL HCL [Concomitant]
     Indication: PAIN
  12. VENTOLIN [Concomitant]
     Indication: ASTHMA

REACTIONS (4)
  - BLOOD CREATININE INCREASED [None]
  - DEHYDRATION [None]
  - HYPOCALCAEMIA [None]
  - RENAL FAILURE ACUTE [None]
